FAERS Safety Report 19073167 (Version 1)
Quarter: 2021Q1

REPORT INFORMATION
  Report Type: Spontaneous
  Country: US (occurrence: US)
  Receive Date: 20210330
  Receipt Date: 20210330
  Transmission Date: 20210420
  Serious: Yes (Other)
  Sender: FDA-Public Use
  Company Number: US-BAYER-2021-110447

PATIENT
  Age: 77 Year
  Sex: Female
  Weight: 54 kg

DRUGS (4)
  1. ONE A DAY 50 PLUS [Suspect]
     Active Substance: VITAMINS
     Indication: NUTRITIONAL SUPPLEMENTATION
     Dosage: 1 DF
     Route: 048
     Dates: start: 20210320, end: 20210320
  2. ONE A DAY 50 PLUS [Suspect]
     Active Substance: VITAMINS
     Indication: NUTRITIONAL SUPPLEMENTATION
     Dosage: 1 UNK
     Route: 048
  3. ONE A DAY 50 PLUS [Suspect]
     Active Substance: VITAMINS
     Indication: NUTRITIONAL SUPPLEMENTATION
     Dosage: 1 UNK
     Route: 048
  4. ASPIRIN (CARDIO) [Suspect]
     Active Substance: ASPIRIN
     Indication: VASCULAR GRAFT

REACTIONS (4)
  - Foreign body in throat [Recovered/Resolved]
  - Product use in unapproved indication [Unknown]
  - Pharyngeal injury [Unknown]
  - Wrong technique in product usage process [None]

NARRATIVE: CASE EVENT DATE: 20210320
